FAERS Safety Report 14334335 (Version 1)
Quarter: 2017Q4

REPORT INFORMATION
  Report Type: Spontaneous
  Country: IE (occurrence: IE)
  Receive Date: 20171228
  Receipt Date: 20171228
  Transmission Date: 20180321
  Serious: Yes (Other)
  Sender: FDA-Public Use
  Company Number: IE-BAUSCH-BL-2017-034733

PATIENT
  Age: 47 Year
  Sex: Male

DRUGS (3)
  1. PREDNISOLONE. [Suspect]
     Active Substance: PREDNISOLONE
     Indication: RETROPERITONEAL FIBROSIS
     Route: 065
  2. PREDNISOLONE. [Suspect]
     Active Substance: PREDNISOLONE
     Dosage: REDUCED DOSE (UNSPECIFIED)
     Route: 065
  3. MYCOPHENOLATE MOFETIL. [Suspect]
     Active Substance: MYCOPHENOLATE MOFETIL
     Indication: RETROPERITONEAL FIBROSIS
     Route: 065

REACTIONS (5)
  - Rebound effect [Unknown]
  - Hydronephrosis [Unknown]
  - Off label use [Unknown]
  - Disease recurrence [Unknown]
  - Retroperitoneal fibrosis [Unknown]
